FAERS Safety Report 22525808 (Version 1)
Quarter: 2023Q2

REPORT INFORMATION
  Report Type: Report from Study
  Country: NL (occurrence: NL)
  Receive Date: 20230606
  Receipt Date: 20230606
  Transmission Date: 20230722
  Serious: Yes (Other)
  Sender: FDA-Public Use
  Company Number: NL-VER-202300052

PATIENT
  Age: 88 Year
  Sex: Male

DRUGS (1)
  1. TRIPTORELIN PAMOATE [Suspect]
     Active Substance: TRIPTORELIN PAMOATE
     Indication: Prostate cancer
     Dosage: THE BATCH NUMBERS WERE W01082, T 12570, W07119 AND EXPIRATION DATE WAS NOT REPORTED. ADDITIONAL INFO
     Route: 030
     Dates: start: 20210216

REACTIONS (1)
  - Terminal state [Unknown]
